FAERS Safety Report 9846963 (Version 1)
Quarter: 2014Q1

REPORT INFORMATION
  Report Type: Spontaneous
  Country: HR (occurrence: HR)
  Receive Date: 20140127
  Receipt Date: 20140127
  Transmission Date: 20141002
  Serious: Yes (Other)
  Sender: FDA-Public Use
  Company Number: HR-TEVA-456428ISR

PATIENT
  Age: 32 Year
  Sex: Male

DRUGS (5)
  1. LOQUEN [Suspect]
     Dosage: 300 MILLIGRAM DAILY;
     Route: 048
     Dates: start: 20121117, end: 20121120
  2. LITIJ KARBONAT [Concomitant]
     Dosage: 300 MILLIGRAM DAILY;
     Route: 048
  3. RIVOTRIL [Concomitant]
  4. CLOPIXOL DEPOT [Concomitant]
  5. OMEGA 3 [Concomitant]
     Dosage: 2000 MILLIGRAM DAILY;

REACTIONS (11)
  - Malaise [Recovered/Resolved]
  - Body temperature increased [Recovered/Resolved]
  - Muscle spasms [Recovered/Resolved]
  - Pain [Recovered/Resolved]
  - Influenza like illness [Recovered/Resolved]
  - Blood creatine phosphokinase increased [Recovered/Resolved]
  - Aspartate aminotransferase increased [Recovered/Resolved]
  - Alanine aminotransferase increased [Not Recovered/Not Resolved]
  - Gamma-glutamyltransferase increased [Recovered/Resolved]
  - C-reactive protein increased [Recovered/Resolved]
  - Drug hypersensitivity [Recovered/Resolved]
